FAERS Safety Report 5381261-1 (Version None)
Quarter: 2007Q3

REPORT INFORMATION
  Report Type: 
  Country: None (occurrence: None)
  Receive Date: 20070706
  Receipt Date: 20070626
  Transmission Date: 20080115
  Serious: Yes (Other)
  Sender: FDA-Public Use
  Company Number: SE-ABBOTT-07P-150-0372759-00

PATIENT
  Sex: Female

DRUGS (19)
  1. KLACID [Suspect]
     Indication: MYCOBACTERIAL INFECTION
     Dates: start: 20061201, end: 20070119
  2. KLACID [Suspect]
     Dates: start: 20070205
  3. AMIKACIN SULFATE [Suspect]
     Indication: MYCOBACTERIAL INFECTION
     Dosage: SOLUTION FOR INJECTION
     Route: 042
     Dates: start: 20061227, end: 20070119
  4. ETHAMBUTOL DIHYDROCHLORIDE [Suspect]
     Indication: MYCOBACTERIAL INFECTION
     Dates: start: 20061201, end: 20070119
  5. ETHAMBUTOL DIHYDROCHLORIDE [Suspect]
     Dates: start: 20070129
  6. RIFAMPICIN [Suspect]
     Indication: MYCOBACTERIAL INFECTION
     Dates: start: 20061201, end: 20070119
  7. RIFAMPICIN [Suspect]
     Dates: start: 20070129
  8. ESTRADIOL [Concomitant]
     Indication: DRUG USE FOR UNKNOWN INDICATION
     Route: 067
  9. LOSARTAN POTASSIUM [Concomitant]
     Indication: DRUG USE FOR UNKNOWN INDICATION
     Route: 048
  10. VENOFER SOLUTION FOR INJECTION [Concomitant]
     Indication: DRUG USE FOR UNKNOWN INDICATION
     Dosage: SOLUTION FOR INJECTION
     Route: 050
  11. OXAZEPAM [Concomitant]
     Indication: DRUG USE FOR UNKNOWN INDICATION
     Route: 048
  12. CALCEVITA EFFERVESCENT TAB [Concomitant]
     Indication: DRUG USE FOR UNKNOWN INDICATION
     Route: 048
  13. FUROSEMIDE [Concomitant]
     Indication: DRUG USE FOR UNKNOWN INDICATION
     Route: 048
  14. CLOMIPRAMINE HYDROCHLORIDE [Concomitant]
     Indication: DRUG USE FOR UNKNOWN INDICATION
     Route: 048
  15. SOTALOL HYDROCHLORIDE [Concomitant]
     Indication: DRUG USE FOR UNKNOWN INDICATION
     Route: 048
  16. FLUNITRAZEPAM [Concomitant]
     Indication: DRUG USE FOR UNKNOWN INDICATION
     Route: 048
  17. ASPIRIN [Concomitant]
     Indication: DRUG USE FOR UNKNOWN INDICATION
     Route: 048
  18. TRAMADOL HCL [Concomitant]
     Indication: DRUG USE FOR UNKNOWN INDICATION
     Route: 048
  19. LOSEC MUPS HP [Concomitant]
     Indication: DRUG USE FOR UNKNOWN INDICATION
     Route: 048

REACTIONS (3)
  - ANGIOEDEMA [None]
  - DEAFNESS NEUROSENSORY [None]
  - TINNITUS [None]
